FAERS Safety Report 24990770 (Version 1)
Quarter: 2025Q1

REPORT INFORMATION
  Report Type: Spontaneous
  Country: US (occurrence: None)
  Receive Date: 20250220
  Receipt Date: 20250220
  Transmission Date: 20250409
  Serious: Yes (Hospitalization)
  Sender: FDA-CTU
  Company Number: None

PATIENT
  Sex: Female

DRUGS (11)
  1. LENALIDOMIDE [Suspect]
     Active Substance: LENALIDOMIDE
     Indication: Plasma cell myeloma
     Dosage: FREQUENCY : DAILY;?
     Dates: start: 20240410
  2. BENZONATATE CAP 200MG [Concomitant]
  3. CEFUROXIME TAB 500MG [Concomitant]
  4. CYCLOBENZAPRINE HYDROCHLORIDE [Concomitant]
     Active Substance: CYCLOBENZAPRINE HYDROCHLORIDE
  5. DARZALEX SOL 100/5ML [Concomitant]
  6. DEXAMETHASONE [Concomitant]
     Active Substance: DEXAMETHASONE
  7. FOSFOMYCIN POW 3GM [Concomitant]
  8. ONDANSETRON TAB 4MG ODT [Concomitant]
  9. PEPCID TAB 20MG [Concomitant]
  10. PRAMIPEXOLE TAB 0.5MG [Concomitant]
  11. PROCHLORPER TAB 10MG [Concomitant]

REACTIONS (2)
  - Pneumonia [None]
  - Therapy interrupted [None]
